FAERS Safety Report 7381242-2 (Version None)
Quarter: 2011Q1

REPORT INFORMATION
  Report Type: 
  Country: None (occurrence: None)
  Receive Date: 20110321
  Receipt Date: 20110309
  Transmission Date: 20110831
  Serious: No
  Sender: FDA-Public Use
  Company Number: 852502

PATIENT
  Age: 25 Year
  Sex: Female
  Weight: 71.36 kg

DRUGS (1)
  1. MORPHINE SULFATE [Suspect]
     Indication: PAIN
     Dosage: 4 MG, X1, INTRAVENOUS (NOT OTHERWISE SPECIFIED)
     Route: 042
     Dates: start: 20110309, end: 20110309

REACTIONS (1)
  - INJECTION SITE URTICARIA [None]
